FAERS Safety Report 23536223 (Version 3)
Quarter: 2024Q4

REPORT INFORMATION
  Report Type: Spontaneous
  Country: MX (occurrence: MX)
  Receive Date: 20240219
  Receipt Date: 20241213
  Transmission Date: 20250115
  Serious: Yes (Other)
  Sender: NOVO NORDISK
  Company Number: MX-NOVOPROD-1173227

PATIENT
  Age: 57 Year
  Sex: Female
  Weight: 68 kg

DRUGS (15)
  1. NOVOEIGHT [Suspect]
     Active Substance: ANTIHEMOPHILIC FACTOR, HUMAN RECOMBINANT
     Dosage: 2000 IU, TIW
     Route: 042
     Dates: start: 20240207
  2. NOVOEIGHT [Suspect]
     Active Substance: ANTIHEMOPHILIC FACTOR, HUMAN RECOMBINANT
     Indication: Prophylaxis
     Dosage: 1500 IU, TIW
     Route: 042
     Dates: start: 20240207
  3. NOVOEIGHT [Suspect]
     Active Substance: ANTIHEMOPHILIC FACTOR, HUMAN RECOMBINANT
     Indication: Factor VIII deficiency
     Dosage: 1500 IU, TIW
     Route: 042
     Dates: start: 202306, end: 20240205
  4. GABAPENTIN [Concomitant]
     Active Substance: GABAPENTIN
     Indication: Trigeminal neuralgia
     Dosage: 1 TABLET
     Dates: start: 2020
  5. PREGABALIN [Concomitant]
     Active Substance: PREGABALIN
     Indication: Trigeminal neuralgia
     Dosage: 150 MG, BID
     Dates: start: 2020
  6. BUPRENORPHINE [Concomitant]
     Active Substance: BUPRENORPHINE
     Indication: Trigeminal neuralgia
     Dosage: ONE PATCH OF 10 AND ONE PATCH OF 5 (NO MORE INFORMATION)
     Dates: start: 2020
  7. VENLAFAXINE [Concomitant]
     Active Substance: VENLAFAXINE HYDROCHLORIDE
     Indication: Insomnia
  8. VENLAFAXINE [Concomitant]
     Active Substance: VENLAFAXINE HYDROCHLORIDE
     Indication: Generalised anxiety disorder
     Dosage: 75 MG, QD
     Dates: start: 2020
  9. QUETIAPINE [Concomitant]
     Active Substance: QUETIAPINE
     Indication: Insomnia
  10. QUETIAPINE [Concomitant]
     Active Substance: QUETIAPINE
     Indication: Generalised anxiety disorder
     Dosage: 1/4, AT NIGHT (NO MORE INFORMATION)
     Dates: start: 2020
  11. IPRATROPIUM BROMIDE [Concomitant]
     Active Substance: IPRATROPIUM BROMIDE
     Indication: Asthma
     Dosage: 2 SHOTS, AS NEEDED
  12. NOVOEIGHT [Suspect]
     Active Substance: ANTIHEMOPHILIC FACTOR, HUMAN RECOMBINANT
     Indication: Factor VIII deficiency
     Dosage: 1500 IU, TIW
     Route: 042
     Dates: start: 202306, end: 20240205
  13. NOVOEIGHT [Suspect]
     Active Substance: ANTIHEMOPHILIC FACTOR, HUMAN RECOMBINANT
     Indication: Prophylaxis
     Dosage: 1500 IU, TIW
     Route: 042
     Dates: start: 20240207
  14. ALBUTEROL [Concomitant]
     Active Substance: ALBUTEROL
     Indication: Asthma
     Dosage: UNK
  15. NIMESULIDE [Concomitant]
     Active Substance: NIMESULIDE
     Indication: Product used for unknown indication
     Dosage: UNK, QD (STARTED 5 MONTHS AGO)

REACTIONS (10)
  - Asthmatic crisis [Recovered/Resolved]
  - Haemarthrosis [Recovering/Resolving]
  - Nasopharyngitis [Recovered/Resolved]
  - Constipation [Recovering/Resolving]
  - Vomiting [Recovered/Resolved]
  - Hypotension [Unknown]
  - Diarrhoea [Recovered/Resolved]
  - Abdominal pain [Recovering/Resolving]
  - Constipation [Recovered/Resolved]
  - Nausea [Recovered/Resolved]

NARRATIVE: CASE EVENT DATE: 20240201
